FAERS Safety Report 7133281-4 (Version None)
Quarter: 2010Q4

REPORT INFORMATION
  Report Type: 
  Country: None (occurrence: None)
  Receive Date: 20101117
  Receipt Date: 20101108
  Transmission Date: 20110411
  Serious: Yes (Hospitalization)
  Sender: FDA-Public Use
  Company Number: TPA2010A05752

PATIENT
  Age: 59 Year
  Sex: Male
  Weight: 130.1823 kg

DRUGS (6)
  1. ULORIC [Suspect]
     Indication: GOUT
     Dosage: (80 MG, 1 IN 1 D, ORAL) (40 MG, 1 IN 1 D, ORAL)
     Route: 048
     Dates: start: 20090303, end: 20090501
  2. ULORIC [Suspect]
     Indication: GOUT
     Dosage: (80 MG, 1 IN 1 D, ORAL) (40 MG, 1 IN 1 D, ORAL)
     Route: 048
     Dates: start: 20090501, end: 20090901
  3. AVAPRO [Concomitant]
  4. COUMADIN [Concomitant]
  5. COLCHICINE [Concomitant]
  6. PREDNISONE [Concomitant]

REACTIONS (6)
  - ABDOMINAL DISCOMFORT [None]
  - DISCOMFORT [None]
  - DIZZINESS [None]
  - INFECTION [None]
  - JOINT SWELLING [None]
  - PULMONARY EMBOLISM [None]
